FAERS Safety Report 5242604-2 (Version None)
Quarter: 2007Q1

REPORT INFORMATION
  Report Type: 
  Country: None (occurrence: None)
  Receive Date: 20070214
  Receipt Date: 20070202
  Transmission Date: 20070707
  Serious: Yes (Hospitalization)
  Sender: FDA-Public Use
  Company Number: 2006-02419

PATIENT
  Age: 69 Year
  Sex: Male
  Weight: 66 kg

DRUGS (27)
  1. VELCADE [Suspect]
     Indication: MULTIPLE MYELOMA
     Dosage: 1.00 MG/M2, INTRAVENOUS; 1.00 MG/M2
     Route: 042
     Dates: start: 20060322, end: 20060401
  2. VELCADE [Suspect]
     Indication: MULTIPLE MYELOMA
     Dosage: 1.00 MG/M2, INTRAVENOUS; 1.00 MG/M2
     Route: 042
     Dates: start: 20060215
  3. MELPHALAN(MELPHALAN) VIAL [Suspect]
     Indication: MULTIPLE MYELOMA
     Dosage: 200.00 MG, INTRAVENOUS; 200 MG/M2
     Route: 042
     Dates: start: 20060804, end: 20060804
  4. DEXAMETHASONE [Suspect]
     Indication: MULTIPLE MYELOMA
     Dosage: 40.00 MG; 20.00 MG
     Dates: start: 20060218, end: 20060325
  5. CISPLATIN [Suspect]
     Indication: MULTIPLE MYELOMA
     Dosage: 10.00 MG/M2, INTRAVENOUS; 10.00 MG/M2
     Route: 042
     Dates: start: 20060325, end: 20060325
  6. CISPLATIN [Suspect]
     Indication: MULTIPLE MYELOMA
     Dosage: 10.00 MG/M2, INTRAVENOUS; 10.00 MG/M2
     Route: 042
     Dates: start: 20060215
  7. DOXORUBICIN HCL [Suspect]
     Indication: MULTIPLE MYELOMA
     Dosage: 10.00 MG/M2 INTRAVENOUS; 10.00 MG/M2
     Route: 042
     Dates: start: 20060325, end: 20060325
  8. DOXORUBICIN HCL [Suspect]
     Indication: MULTIPLE MYELOMA
     Dosage: 10.00 MG/M2 INTRAVENOUS; 10.00 MG/M2
     Route: 042
     Dates: start: 20060215
  9. THALIDOMIDE [Suspect]
     Indication: MULTIPLE MYELOMA
     Dosage: 50.00 MG, ORAL; 200 MG
     Route: 048
     Dates: end: 20060418
  10. THALIDOMIDE [Suspect]
     Indication: MULTIPLE MYELOMA
     Dosage: 50.00 MG, ORAL; 200 MG
     Route: 048
     Dates: start: 20060101
  11. CYCLOPHOSPHAMIDE [Suspect]
     Indication: MULTIPLE MYELOMA
     Dosage: 400.00 MG/M2, INTRAVENOUS; 400.00 MG/M2
     Route: 042
     Dates: start: 20060325, end: 20060325
  12. CYCLOPHOSPHAMIDE [Suspect]
     Indication: MULTIPLE MYELOMA
     Dosage: 400.00 MG/M2, INTRAVENOUS; 400.00 MG/M2
     Route: 042
     Dates: start: 20060215
  13. ETOPOSIDE [Suspect]
     Indication: MULTIPLE MYELOMA
     Dosage: 40.00 MG/M2, INTRAVENOUS; 40.00 MG/M2
     Route: 042
     Dates: start: 20060325, end: 20060325
  14. ETOPOSIDE [Suspect]
     Indication: MULTIPLE MYELOMA
     Dosage: 40.00 MG/M2, INTRAVENOUS; 40.00 MG/M2
     Route: 042
     Dates: start: 20060215
  15. ZOLOFT [Concomitant]
  16. PROTONIX [Concomitant]
  17. IMODIUM [Concomitant]
  18. PROCRIT [Concomitant]
  19. FOLIC ACID [Concomitant]
  20. POTASSIUM CHLORIDE [Concomitant]
  21. ACYCLOVIR [Concomitant]
  22. COLESTID [Concomitant]
  23. MAGIC MOUTHWASH [Concomitant]
  24. FLOMAX [Concomitant]
  25. PROSCAR [Concomitant]
  26. DETROL [Concomitant]
  27. LEVAQUIN [Concomitant]

REACTIONS (4)
  - APHAGIA [None]
  - COLITIS [None]
  - RENAL FAILURE [None]
  - STEM CELL TRANSPLANT [None]
